FAERS Safety Report 8089274-6 (Version None)
Quarter: 2012Q1

REPORT INFORMATION
  Report Type: 
  Country: None (occurrence: None)
  Receive Date: 20120128
  Receipt Date: 20110708
  Transmission Date: 20120608
  Serious: No
  Sender: FDA-Public Use
  Company Number: US-ABBOTT-11P-163-0837725-00

PATIENT
  Age: 29 Year
  Sex: Male

DRUGS (3)
  1. MERCAPTOPURINE [Concomitant]
     Indication: CROHN'S DISEASE
  2. HUMIRA [Suspect]
     Indication: CROHN'S DISEASE
     Dates: start: 20110601
  3. CORTIFOAM [Concomitant]
     Indication: CROHN'S DISEASE
     Route: 061

REACTIONS (4)
  - NAUSEA [None]
  - ABDOMINAL PAIN UPPER [None]
  - INFLUENZA LIKE ILLNESS [None]
  - ASTHENIA [None]
